FAERS Safety Report 10238212 (Version 1)
Quarter: 2014Q2

REPORT INFORMATION
  Report Type: Report from Study
  Country: AU (occurrence: AU)
  Receive Date: 20140616
  Receipt Date: 20140616
  Transmission Date: 20141212
  Serious: Yes (Congenital Anomaly)
  Sender: FDA-Public Use
  Company Number: AU-JNJFOC-20140605652

PATIENT
  Sex: 0

DRUGS (1)
  1. RISPERIDONE [Suspect]
     Indication: PSYCHOTIC DISORDER
     Route: 064

REACTIONS (3)
  - CHARGE syndrome [Unknown]
  - Foetal exposure during pregnancy [Recovered/Resolved]
  - Withdrawal syndrome [Unknown]
